FAERS Safety Report 19091912 (Version 2)
Quarter: 2021Q2

REPORT INFORMATION
  Report Type: Spontaneous
  Country: CN (occurrence: CN)
  Receive Date: 20210405
  Receipt Date: 20210414
  Transmission Date: 20210717
  Serious: Yes (Hospitalization)
  Sender: FDA-Public Use
  Company Number: CN-BAYER-2021-116449

PATIENT
  Age: 13 Month
  Sex: Female

DRUGS (3)
  1. LOW MOLECULAR WEIGHT HEPARIN [Concomitant]
     Active Substance: UNSPECIFIED INGREDIENT
  2. IOPROMIDE 300 [Suspect]
     Active Substance: IOPROMIDE
     Indication: ANGIOGRAM
     Dosage: 50 ML, ONCE
  3. IOPROMIDE 300 [Suspect]
     Active Substance: IOPROMIDE
     Indication: ARTERIOVENOUS FISTULA
     Dosage: 45 UNK

REACTIONS (1)
  - Subdural effusion [Recovered/Resolved]
